FAERS Safety Report 7601607-0 (Version None)
Quarter: 2011Q3

REPORT INFORMATION
  Report Type: 
  Country: None (occurrence: None)
  Receive Date: 20110711
  Receipt Date: 20110630
  Transmission Date: 20111222
  Serious: Yes (Hospitalization)
  Sender: FDA-Public Use
  Company Number: PHHO2011GB08942

PATIENT
  Sex: Female
  Weight: 95.7 kg

DRUGS (8)
  1. EPOPROSTENOL SODIUM [Concomitant]
     Indication: PULMONARY ARTERIAL HYPERTENSION
     Dosage: 30 MG/KG/MIN
     Route: 042
     Dates: start: 20101025
  2. SILDENAFIL CITRATE [Concomitant]
     Indication: PULMONARY ARTERIAL HYPERTENSION
     Dosage: 40 MG, TID
     Route: 048
     Dates: start: 20081224, end: 20110614
  3. WARFARIN SODIUM [Concomitant]
     Indication: ANTICOAGULANT THERAPY
     Dosage: AS PER INL, OD
     Route: 048
     Dates: start: 20080805
  4. OMEPRAZOLE [Concomitant]
     Indication: GASTROOESOPHAGEAL REFLUX DISEASE
     Dosage: 20 MG, QD
     Route: 048
     Dates: start: 20081212
  5. SPIRONOLACTONE [Concomitant]
     Indication: DIURETIC THERAPY
     Dosage: 125 MG, QD
     Route: 048
     Dates: start: 20081212, end: 20110623
  6. GLEEVEC [Suspect]
     Indication: PULMONARY ARTERIAL HYPERTENSION
     Dosage: 200 MG, QD
     Route: 048
     Dates: start: 20100331, end: 20110529
  7. BUMETANIDE [Concomitant]
     Indication: DIURETIC THERAPY
     Dosage: 2 MG, QD
     Route: 048
     Dates: start: 20110620, end: 20110628
  8. ALLOPURINOL [Concomitant]
     Indication: PROPHYLAXIS
     Dosage: 100 MG, QD
     Route: 048
     Dates: start: 20090601, end: 20110621

REACTIONS (19)
  - ALANINE AMINOTRANSFERASE INCREASED [None]
  - RENAL IMPAIRMENT [None]
  - WEIGHT INCREASED [None]
  - SINUS TACHYCARDIA [None]
  - BLOOD UREA INCREASED [None]
  - BLOOD SODIUM DECREASED [None]
  - BLOOD CREATININE INCREASED [None]
  - GENERAL PHYSICAL HEALTH DETERIORATION [None]
  - CONDITION AGGRAVATED [None]
  - LYMPHOCYTE PERCENTAGE DECREASED [None]
  - ELECTROCARDIOGRAM REPOLARISATION ABNORMALITY [None]
  - FLUID OVERLOAD [None]
  - DISEASE PROGRESSION [None]
  - PLATELET COUNT DECREASED [None]
  - NEUTROPHIL PERCENTAGE INCREASED [None]
  - BLOOD ALKALINE PHOSPHATASE INCREASED [None]
  - RIGHT VENTRICULAR FAILURE [None]
  - PULMONARY HYPERTENSION [None]
  - BLOOD BILIRUBIN INCREASED [None]
